FAERS Safety Report 8670588 (Version 3)
Quarter: 2012Q4

REPORT INFORMATION
  Report Type: Report from Study
  Country: GE (occurrence: GE)
  Receive Date: 20120718
  Receipt Date: 20121023
  Transmission Date: 20130627
  Serious: Yes (Other)
  Sender: FDA-Public Use
  Company Number: GE-CELGENEUS-225-C5013-11033116

PATIENT
  Age: 74 Year
  Sex: Male
  Weight: 55 kg

DRUGS (3)
  1. CC-5013 [Suspect]
     Indication: MULTIPLE MYELOMA
     Dosage: 7.5 Milligram
     Route: 048
     Dates: start: 20070220
  2. MELPHALAN [Suspect]
     Indication: MULTIPLE MYELOMA
     Dosage: 8 Milligram
     Route: 048
     Dates: start: 20070220, end: 20071007
  3. PREDNISONE [Suspect]
     Indication: MULTIPLE MYELOMA
     Dosage: 114 Milligram
     Route: 048
     Dates: start: 20070220, end: 20071007

REACTIONS (2)
  - Squamous cell carcinoma of skin [Not Recovered/Not Resolved]
  - Squamous cell carcinoma of skin [Not Recovered/Not Resolved]
